FAERS Safety Report 22641740 (Version 1)
Quarter: 2023Q2

REPORT INFORMATION
  Report Type: Report from Study
  Country: US (occurrence: US)
  Receive Date: 20230626
  Receipt Date: 20230626
  Transmission Date: 20230721
  Serious: Yes (Hospitalization)
  Sender: FDA-Public Use
  Company Number: US-PFIZER INC-PV202300104572

PATIENT
  Age: 87 Year
  Sex: Female

DRUGS (2)
  1. MEKTOVI [Suspect]
     Active Substance: BINIMETINIB
     Dosage: 15 MG, 4X/DAY (EVERY 6 HOURS)
     Dates: start: 20230610
  2. BRAFTOVI [Suspect]
     Active Substance: ENCORAFENIB
     Dosage: 75 MG
     Dates: start: 20230610

REACTIONS (3)
  - Myocardial infarction [Unknown]
  - Polyuria [Unknown]
  - Off label use [Unknown]

NARRATIVE: CASE EVENT DATE: 20230610
